FAERS Safety Report 9878257 (Version 2)
Quarter: 2014Q1

REPORT INFORMATION
  Report Type: Spontaneous
  Country: DE (occurrence: DE)
  Receive Date: 20140206
  Receipt Date: 20140206
  Transmission Date: 20141002
  Serious: Yes (Other)
  Sender: FDA-Public Use
  Company Number: DE-JNJFOC-20131014582

PATIENT
  Age: 63 Year
  Sex: Female
  Weight: 80 kg

DRUGS (4)
  1. XARELTO [Suspect]
     Indication: CEREBROVASCULAR ACCIDENT PROPHYLAXIS
     Route: 048
     Dates: start: 201305, end: 201308
  2. XARELTO [Suspect]
     Indication: ATRIAL FIBRILLATION
     Route: 048
     Dates: start: 201305, end: 201308
  3. PROVAS COMP [Concomitant]
     Route: 065
  4. NEBIVOLOL [Concomitant]
     Route: 065

REACTIONS (3)
  - Haemorrhage subcutaneous [Recovered/Resolved]
  - Epistaxis [Recovered/Resolved]
  - Petechiae [Unknown]
